FAERS Safety Report 9740442 (Version 3)
Quarter: 2014Q1

REPORT INFORMATION
  Report Type: Spontaneous
  Country: US (occurrence: US)
  Receive Date: 20131209
  Receipt Date: 20140306
  Transmission Date: 20141002
  Serious: Yes (Hospitalization)
  Sender: FDA-Public Use
  Company Number: US-FRI-1000051907

PATIENT
  Age: 68 Year
  Sex: Female
  Weight: 60 kg

DRUGS (1)
  1. TEFLARO [Suspect]
     Indication: CELLULITIS STAPHYLOCOCCAL
     Dosage: 600 MG
     Route: 042
     Dates: start: 20130926, end: 20131016

REACTIONS (1)
  - Pancytopenia [Recovered/Resolved]
